FAERS Safety Report 4496667-2 (Version None)
Quarter: 2004Q4

REPORT INFORMATION
  Report Type: 
  Country: None (occurrence: None)
  Receive Date: 20041108
  Receipt Date: 20041108
  Transmission Date: 20050328
  Serious: Yes (Other)
  Sender: FDA-Public Use
  Company Number: None

PATIENT
  Age: 39 Year
  Sex: Female
  Weight: 56.6996 kg

DRUGS (1)
  1. COLD  EEZE     QUIGLEY [Suspect]
     Indication: NASOPHARYNGITIS
     Dosage: ONCE

REACTIONS (4)
  - CRYING [None]
  - MEDICATION TAMPERING [None]
  - PAIN [None]
  - PHARMACEUTICAL PRODUCT COMPLAINT [None]
